FAERS Safety Report 19203372 (Version 3)
Quarter: 2022Q4

REPORT INFORMATION
  Report Type: Report from Study
  Country: US (occurrence: US)
  Receive Date: 20210430
  Receipt Date: 20221125
  Transmission Date: 20230113
  Serious: No
  Sender: FDA-Public Use
  Company Number: US-NOVARTISTESTPH-NVSC2021US098560

PATIENT
  Sex: Female

DRUGS (1)
  1. TASIGNA [Suspect]
     Active Substance: NILOTINIB
     Indication: Product used for unknown indication
     Dosage: 150 MG, BID
     Route: 048
     Dates: start: 20150601, end: 20221119

REACTIONS (7)
  - Abdominal pain upper [Unknown]
  - Malaise [Unknown]
  - Feeling hot [Unknown]
  - Dyspepsia [Unknown]
  - Chest pain [Unknown]
  - Platelet count increased [Unknown]
  - Product dose omission issue [Unknown]
